FAERS Safety Report 15984102 (Version 4)
Quarter: 2024Q1

REPORT INFORMATION
  Report Type: Other
  Country: DE (occurrence: None)
  Receive Date: 20190220
  Receipt Date: 20240305
  Transmission Date: 20240410
  Serious: Yes (Hospitalization, Other)
  Sender: FDA-Public Use
  Company Number: DE-ROCHE-2142422

PATIENT
  Age: 30 Year
  Sex: Female

DRUGS (9)
  1. OCREVUS [Suspect]
     Active Substance: OCRELIZUMAB
     Indication: Relapsing-remitting multiple sclerosis
     Dosage: SECOND INFUSION: 28/JUN/2018?SUBSEQUENT DOSE 600 MG 1 IN 182, 364 DAYS
     Route: 042
     Dates: start: 20180614
  2. OCREVUS [Suspect]
     Active Substance: OCRELIZUMAB
     Dosage: SUBSEQUENT DOSE RECEIVED ON 27/JUN/2019, 19/DEC/2019, 25/JUN/2020, 23/DEC/2020, 23/JUN/2021
     Route: 042
     Dates: start: 20181220
  3. OCREVUS [Suspect]
     Active Substance: OCRELIZUMAB
     Route: 042
     Dates: start: 20230727
  4. NICOTINE [Suspect]
     Active Substance: NICOTINE
     Indication: Product used for unknown indication
     Route: 065
  5. GABAPENTIN [Concomitant]
     Active Substance: GABAPENTIN
     Dosage: AT MIDDAY AND IN THE EVENING
  6. GABAPENTIN [Concomitant]
     Active Substance: GABAPENTIN
     Dosage: IN THE MORNING
  7. GABAPENTIN [Concomitant]
     Active Substance: GABAPENTIN
  8. TRAMADOL [Concomitant]
     Active Substance: TRAMADOL\TRAMADOL HYDROCHLORIDE
     Dosage: 15-20 GTT
  9. TRAMADOL [Concomitant]
     Active Substance: TRAMADOL\TRAMADOL HYDROCHLORIDE
     Dosage: 0,0-1), AS REQUIRED

REACTIONS (21)
  - Magnetic resonance imaging abnormal [Recovered/Resolved]
  - Pyelitis [Recovered/Resolved]
  - Headache [Recovered/Resolved]
  - Fatigue [Recovered/Resolved]
  - Intermenstrual bleeding [Recovered/Resolved]
  - Pain in extremity [Recovered/Resolved]
  - Illness [Recovered/Resolved]
  - Nasopharyngitis [Recovered/Resolved]
  - Hypertension [Recovered/Resolved]
  - Hypertension [Not Recovered/Not Resolved]
  - Temperature intolerance [Recovered/Resolved]
  - Throat irritation [Recovered/Resolved]
  - Cystitis [Recovered/Resolved]
  - Pyrexia [Recovered/Resolved]
  - Renal pain [Recovered/Resolved]
  - Oropharyngeal pain [Recovered/Resolved]
  - Swelling face [Recovered/Resolved]
  - Haematoma [Recovering/Resolving]
  - Nausea [Recovered/Resolved]
  - Maternal exposure before pregnancy [Unknown]
  - Abdominal pain lower [Recovered/Resolved]

NARRATIVE: CASE EVENT DATE: 20180614
